FAERS Safety Report 6526816-3 (Version None)
Quarter: 2010Q1

REPORT INFORMATION
  Report Type: 
  Country: None (occurrence: None)
  Receive Date: 20100104
  Receipt Date: 20100104
  Transmission Date: 20100710
  Serious: No
  Sender: FDA-Public Use
  Company Number: None

PATIENT
  Age: 69 Year
  Sex: Male
  Weight: 74.8435 kg

DRUGS (1)
  1. NIASPAN [Suspect]
     Indication: HIGH DENSITY LIPOPROTEIN DECREASED
     Dosage: 1 AT BEDTIME 1 MOUTH
     Route: 048
     Dates: start: 20091210, end: 20091224

REACTIONS (2)
  - BURNING SENSATION [None]
  - PARAESTHESIA [None]
